FAERS Safety Report 7929131-6 (Version None)
Quarter: 2011Q4

REPORT INFORMATION
  Report Type: 
  Country: None (occurrence: None)
  Receive Date: 20111119
  Receipt Date: 20111107
  Transmission Date: 20120403
  Serious: Yes (Death)
  Sender: FDA-Public Use
  Company Number: US-ELI_LILLY_AND_COMPANY-US201107001005

PATIENT
  Sex: Male

DRUGS (2)
  1. VITAMIN D [Concomitant]
  2. FORTEO [Suspect]
     Dosage: 20 UG, QD
     Route: 058
     Dates: start: 20100623

REACTIONS (5)
  - PAROSMIA [None]
  - FALL [None]
  - DYSPNOEA [None]
  - DEATH [None]
  - TONGUE INJURY [None]
